FAERS Safety Report 25496206 (Version 1)
Quarter: 2025Q2

REPORT INFORMATION
  Report Type: Spontaneous
  Country: BR (occurrence: BR)
  Receive Date: 20250630
  Receipt Date: 20250630
  Transmission Date: 20250716
  Serious: Yes (Other)
  Sender: BEIGENE
  Company Number: BR-BEIGENE-BGN-2025-010556

PATIENT
  Age: 56 Year

DRUGS (2)
  1. BRUKINSA [Suspect]
     Active Substance: ZANUBRUTINIB
     Indication: Marginal zone lymphoma
     Dosage: 160 MILLIGRAM, BID
  2. R CVP [Concomitant]
     Indication: Marginal zone lymphoma

REACTIONS (8)
  - Ascites [Unknown]
  - Portal hypertension [Unknown]
  - Hepatosplenomegaly [Unknown]
  - Varices oesophageal [Unknown]
  - Rash [Unknown]
  - Petechiae [Unknown]
  - Telangiectasia [Unknown]
  - Generalised oedema [Unknown]
